FAERS Safety Report 8025113-7 (Version None)
Quarter: 2012Q1

REPORT INFORMATION
  Report Type: 
  Country: None (occurrence: None)
  Receive Date: 20120105
  Receipt Date: 20120104
  Transmission Date: 20120608
  Serious: Yes (Hospitalization, Other)
  Sender: FDA-Public Use
  Company Number: US-ROCHE-698054

PATIENT
  Sex: Male
  Weight: 89.8 kg

DRUGS (10)
  1. AMNESTEEM [Suspect]
     Indication: ACNE
     Route: 048
     Dates: start: 20040101, end: 20040201
  2. DDAVP [Concomitant]
  3. METHYLPREDNISOLONE [Concomitant]
  4. AMNESTEEM [Suspect]
     Route: 048
  5. AMNESTEEM [Suspect]
     Route: 048
     Dates: start: 20040513, end: 20040601
  6. CEPHALEXIN [Concomitant]
  7. KEFLEX [Concomitant]
     Indication: ACNE
  8. ACCUTANE [Suspect]
     Route: 065
     Dates: start: 20040211, end: 20040301
  9. ACCUTANE [Suspect]
     Indication: ACNE
     Route: 065
  10. AMNESTEEM [Suspect]
     Dosage: 40 MG BID ALTERNATING WITH 40 MG TID EVERY THIRD DAY
     Route: 048

REACTIONS (7)
  - EMOTIONAL DISORDER [None]
  - INFLAMMATORY BOWEL DISEASE [None]
  - XEROSIS [None]
  - IRRITABLE BOWEL SYNDROME [None]
  - CROHN'S DISEASE [None]
  - MYALGIA [None]
  - ARTHRALGIA [None]
